FAERS Safety Report 6610641-9 (Version None)
Quarter: 2010Q1

REPORT INFORMATION
  Report Type: 
  Country: None (occurrence: None)
  Receive Date: 20100302
  Receipt Date: 20100217
  Transmission Date: 20100710
  Serious: Yes (Hospitalization)
  Sender: FDA-Public Use
  Company Number: A0843030A

PATIENT
  Age: 79 Year
  Sex: Female
  Weight: 50 kg

DRUGS (4)
  1. PAZOPANIB [Suspect]
     Indication: NEOPLASM
     Dosage: 800MG PER DAY
     Route: 048
     Dates: start: 20090424
  2. SYNTHROID [Concomitant]
     Indication: HYPOTHYROIDISM
     Dosage: 125MCG PER DAY
     Route: 048
     Dates: start: 19600101
  3. PREMARIN [Concomitant]
     Indication: HORMONE REPLACEMENT THERAPY
     Dosage: .625MG PER DAY
     Route: 048
     Dates: start: 19700101
  4. PROTONIX [Concomitant]
     Dosage: 40MG PER DAY
     Route: 048
     Dates: start: 20060213

REACTIONS (7)
  - ABDOMINAL PAIN UPPER [None]
  - BILE DUCT OBSTRUCTION [None]
  - CONSTIPATION [None]
  - ERUCTATION [None]
  - HYPERBILIRUBINAEMIA [None]
  - JAUNDICE [None]
  - LEUKOCYTOSIS [None]
